FAERS Safety Report 24552260 (Version 1)
Quarter: 2024Q4

REPORT INFORMATION
  Report Type: Spontaneous
  Country: US (occurrence: US)
  Receive Date: 20241026
  Receipt Date: 20241026
  Transmission Date: 20250114
  Serious: Yes (Other)
  Sender: ALEXION PHARMACEUTICALS
  Company Number: US-AstraZeneca-CH-00729808A

PATIENT

DRUGS (8)
  1. BYETTA [Suspect]
     Active Substance: EXENATIDE
     Dosage: UNK
  2. BYETTA [Suspect]
     Active Substance: EXENATIDE
     Dosage: UNK
  3. BYETTA [Suspect]
     Active Substance: EXENATIDE
     Dosage: UNK
  4. BYETTA [Suspect]
     Active Substance: EXENATIDE
     Dosage: UNK
  5. BYDUREON [Suspect]
     Active Substance: EXENATIDE
  6. BYDUREON [Suspect]
     Active Substance: EXENATIDE
  7. BYDUREON [Suspect]
     Active Substance: EXENATIDE
  8. BYDUREON [Suspect]
     Active Substance: EXENATIDE

REACTIONS (3)
  - Lymphoma [Unknown]
  - Anaemia [Unknown]
  - Tremor [Unknown]
